FAERS Safety Report 10142563 (Version 2)
Quarter: 2014Q3

REPORT INFORMATION
  Report Type: Report from Study
  Country: DE (occurrence: DE)
  Receive Date: 20140430
  Receipt Date: 20140708
  Transmission Date: 20150326
  Serious: No
  Sender: FDA-Public Use
  Company Number: DE-ROCHE-1389665

PATIENT
  Age: 48 Year
  Sex: Female
  Weight: 68 kg

DRUGS (3)
  1. METHOTREXATE [Concomitant]
     Active Substance: METHOTREXATE
     Indication: RHEUMATOID ARTHRITIS
     Route: 058
     Dates: start: 20050502
  2. TOCILIZUMAB [Suspect]
     Active Substance: TOCILIZUMAB
     Indication: RHEUMATOID ARTHRITIS
     Route: 042
     Dates: start: 20130829, end: 20140311
  3. PREDNISOLON [Concomitant]
     Active Substance: PREDNISOLONE
     Indication: RHEUMATOID ARTHRITIS
     Route: 065
     Dates: start: 20080523

REACTIONS (3)
  - Nasopharyngitis [Recovered/Resolved]
  - Vomiting [Recovered/Resolved]
  - Diarrhoea [Recovered/Resolved]

NARRATIVE: CASE EVENT DATE: 20140331
